FAERS Safety Report 6222504-1 (Version None)
Quarter: 2009Q2

REPORT INFORMATION
  Report Type: 
  Country: None (occurrence: None)
  Receive Date: 20090609
  Receipt Date: 20090609
  Transmission Date: 20091009
  Serious: Yes (Hospitalization, Other)
  Sender: FDA-Public Use
  Company Number: None

PATIENT
  Age: 28 Year
  Sex: Female
  Weight: 81.6475 kg

DRUGS (2)
  1. EFFEXOR XR [Suspect]
     Indication: ANXIETY
     Dosage: 75 - 150MG VARIED PO
     Route: 048
     Dates: start: 20000601, end: 20090101
  2. EFFEXOR XR [Suspect]
     Indication: DEPRESSION
     Dosage: 75 - 150MG VARIED PO
     Route: 048
     Dates: start: 20000601, end: 20090101

REACTIONS (2)
  - ANGIOEDEMA [None]
  - IDIOPATHIC URTICARIA [None]
